FAERS Safety Report 9629588 (Version 1)
Quarter: 2013Q4

REPORT INFORMATION
  Report Type: Spontaneous
  Country: US (occurrence: US)
  Receive Date: 20131017
  Receipt Date: 20131017
  Transmission Date: 20140711
  Serious: Yes (Hospitalization)
  Sender: FDA-Public Use
  Company Number: PHEH2013US021589

PATIENT
  Age: 58 Year
  Sex: Female
  Weight: 84.1 kg

DRUGS (3)
  1. EVEROLIMUS [Suspect]
     Indication: DIFFUSE LARGE B-CELL LYMPHOMA
     Dosage: 5 MG, QD
     Route: 048
     Dates: start: 20130717, end: 20130806
  2. EVEROLIMUS [Suspect]
     Indication: OFF LABEL USE
  3. LENALIDOMIDE [Suspect]
     Indication: DIFFUSE LARGE B-CELL LYMPHOMA
     Dosage: 10 MG, QD
     Route: 048
     Dates: start: 20130717, end: 20130806

REACTIONS (8)
  - Small intestinal obstruction [Unknown]
  - Abdominal pain [Unknown]
  - Nausea [Unknown]
  - Vomiting [Unknown]
  - Diarrhoea [Not Recovered/Not Resolved]
  - Atelectasis [Unknown]
  - Pleural effusion [Not Recovered/Not Resolved]
  - Decreased appetite [Unknown]
